FAERS Safety Report 16108147 (Version 2)
Quarter: 2019Q2

REPORT INFORMATION
  Report Type: Report from Study
  Country: PT (occurrence: PT)
  Receive Date: 20190322
  Receipt Date: 20190405
  Transmission Date: 20190711
  Serious: No
  Sender: FDA-Public Use
  Company Number: PT-CELLTRION INC.-2019PT019426

PATIENT

DRUGS (21)
  1. REMSIMA [Suspect]
     Active Substance: INFLIXIMAB
     Dosage: 690 MG (PATIENT^S WEIGHT: 69)
     Route: 042
     Dates: start: 20180403, end: 20180403
  2. MESALAZINE [Concomitant]
     Active Substance: MESALAMINE
     Indication: INFLAMMATORY BOWEL DISEASE
     Dosage: 3 G, QD
     Route: 048
     Dates: start: 2013
  3. ELECTROLYTES NOS W/GLUCOSE [Concomitant]
     Active Substance: DEXTROSE\ELECTROLYTES NOS
  4. CEFOXITIN [Concomitant]
     Active Substance: CEFOXITIN SODIUM
     Dosage: UNK
  5. REMSIMA [Suspect]
     Active Substance: INFLIXIMAB
     Indication: INFLAMMATORY BOWEL DISEASE
     Dosage: 340 MG (PATIENT^S WEIGHT: 68)
     Route: 042
     Dates: start: 20170724
  6. REMSIMA [Suspect]
     Active Substance: INFLIXIMAB
     Dosage: 680 MG (PATIENT^S WEIGHT: 68)
     Route: 042
     Dates: start: 20180625, end: 20180625
  7. REMSIMA [Suspect]
     Active Substance: INFLIXIMAB
     Dosage: 700 MG (PATIENT^S WEIGHT: 70)
     Route: 042
     Dates: start: 20180926
  8. SODIUM CHLORIDE AND GLUCOSE [Concomitant]
     Dosage: UNK
  9. REMSIMA [Suspect]
     Active Substance: INFLIXIMAB
     Dosage: 350 MG (PATIENT^S WEIGHT: 70)
     Route: 042
     Dates: start: 20180104, end: 20180104
  10. REMSIMA [Suspect]
     Active Substance: INFLIXIMAB
     Dosage: 680 MG (PATIENT^S WEIGHT: 68)
     Route: 042
     Dates: start: 20180514, end: 20180514
  11. REMSIMA [Suspect]
     Active Substance: INFLIXIMAB
     Dosage: 690 MG (PATIENT^S WEIGHT: 69)
     Route: 042
     Dates: start: 20180813, end: 20180813
  12. NEOMICIN [Concomitant]
     Dosage: UNK
  13. AZATHIOPRINE. [Concomitant]
     Active Substance: AZATHIOPRINE
     Indication: INFLAMMATORY BOWEL DISEASE
     Dosage: 150 MG, QD
     Route: 048
     Dates: start: 2012
  14. REMSIMA [Suspect]
     Active Substance: INFLIXIMAB
     Dosage: 350 MG (PATIENT^S WEIGHT: 70)
     Route: 042
     Dates: start: 20170919
  15. REMSIMA [Suspect]
     Active Substance: INFLIXIMAB
     Dosage: 355 MG (PATIENT^S WEIGHT: 71)
     Route: 042
     Dates: start: 20171114, end: 20171114
  16. REMSIMA [Suspect]
     Active Substance: INFLIXIMAB
     Dosage: 520 MG (PATIENT^S WEIGHT: 52)
     Route: 042
     Dates: start: 20181219
  17. POTASSIUM CHLORIDE. [Concomitant]
     Active Substance: POTASSIUM CHLORIDE
     Dosage: UNK
  18. KLEAN-PREP [Concomitant]
     Active Substance: ELECTROLYTES NOS\POLYETHYLENE GLYCOL 3350
     Dosage: UNK
  19. MACROGOL [Concomitant]
     Active Substance: POLYETHYLENE GLYCOLS
     Dosage: UNK
  20. REMSIMA [Suspect]
     Active Substance: INFLIXIMAB
     Dosage: 700 MG (PATIENT^S WEIGHT: 70)
     Route: 042
     Dates: start: 20181106
  21. ENOXAPARIN SODIUM. [Concomitant]
     Active Substance: ENOXAPARIN SODIUM
     Dosage: UNK

REACTIONS (1)
  - Condition aggravated [Recovered/Resolved]

NARRATIVE: CASE EVENT DATE: 20190129
